FAERS Safety Report 13080669 (Version 2)
Quarter: 2017Q1

REPORT INFORMATION
  Report Type: Spontaneous
  Country: JP (occurrence: JP)
  Receive Date: 20170103
  Receipt Date: 20170202
  Transmission Date: 20170428
  Serious: Yes (Death, Hospitalization, Other)
  Sender: FDA-Public Use
  Company Number: JP-JNJFOC-20161226233

PATIENT
  Age: 80 Year
  Sex: Male

DRUGS (1)
  1. SIMPONI [Suspect]
     Active Substance: GOLIMUMAB
     Indication: RHEUMATOID ARTHRITIS
     Route: 058
     Dates: start: 20130508, end: 20161028

REACTIONS (3)
  - Lung neoplasm malignant [Unknown]
  - Emphysema [Unknown]
  - Death [Fatal]

NARRATIVE: CASE EVENT DATE: 20150803
